FAERS Safety Report 6868648-2 (Version None)
Quarter: 2010Q3

REPORT INFORMATION
  Report Type: 
  Country: None (occurrence: None)
  Receive Date: 20100722
  Receipt Date: 20080604
  Transmission Date: 20110219
  Serious: No
  Sender: FDA-Public Use
  Company Number: US-PFIZER INC-2008047393

PATIENT

DRUGS (9)
  1. CHANTIX [Suspect]
  2. ADVAIR DISKUS 100/50 [Concomitant]
  3. BACLOFEN [Concomitant]
  4. SIMVASTATIN [Concomitant]
  5. DIAZEPAM [Concomitant]
  6. MORPHINE [Concomitant]
  7. ATENOLOL [Concomitant]
  8. METHADONE HCL [Concomitant]
  9. CELEBREX [Concomitant]

REACTIONS (2)
  - INSOMNIA [None]
  - NAUSEA [None]
